FAERS Safety Report 6852507-5 (Version None)
Quarter: 2010Q3

REPORT INFORMATION
  Report Type: 
  Country: None (occurrence: None)
  Receive Date: 20100717
  Receipt Date: 20071113
  Transmission Date: 20110219
  Serious: No
  Sender: FDA-Public Use
  Company Number: US-PFIZER INC-2007097515

PATIENT
  Age: 55 Year
  Sex: Female
  Weight: 61.4 kg

DRUGS (3)
  1. CHANTIX [Suspect]
     Indication: SMOKING CESSATION THERAPY
     Dates: start: 20071021
  2. ANTIHYPERTENSIVES [Concomitant]
  3. PAPAVERINE [Concomitant]
     Indication: TINNITUS

REACTIONS (1)
  - TINNITUS [None]
